FAERS Safety Report 14317806 (Version 1)
Quarter: 2017Q4

REPORT INFORMATION
  Report Type: Spontaneous
  Country: US (occurrence: US)
  Receive Date: 20171221
  Receipt Date: 20171221
  Transmission Date: 20180321
  Serious: Yes (Life-Threatening, Other)
  Sender: FDA-Public Use
  Company Number: None

PATIENT
  Age: 65 Year
  Sex: Male
  Weight: 92.25 kg

DRUGS (16)
  1. BACLOFEN. [Suspect]
     Active Substance: BACLOFEN
     Indication: TRISMUS
     Dosage: ?          QUANTITY:90 TABLET(S);?
     Route: 048
     Dates: start: 20170628, end: 20170706
  2. ESTRADIOL. [Concomitant]
     Active Substance: ESTRADIOL
  3. TRIAZOLAM. [Concomitant]
     Active Substance: TRIAZOLAM
  4. MELATONIN [Concomitant]
     Active Substance: MELATONIN
  5. LEUCOVORN CALCIUM [Concomitant]
  6. FLECTOR [Concomitant]
     Active Substance: DICLOFENAC EPOLAMINE
  7. TERCONAZOLE. [Concomitant]
     Active Substance: TERCONAZOLE
  8. CALCIUM-MAG-POTASSIUM HS [Concomitant]
  9. ELDERBERRY TINCTURE [Concomitant]
  10. GABAPENTIN. [Concomitant]
     Active Substance: GABAPENTIN
  11. MULTI-VITAMIN [Concomitant]
     Active Substance: .ALPHA.-TOCOPHEROL ACETATE, DL-\ASCORBIC ACID\CYANOCOBALAMIN\FLUORIDE ION\FOLIC ACID\NIACIN\PYRIDOXINE\RIBOFLAVIN\THIAMINE\VITAMIN A\VITAMIN D
  12. QUERCETIN [Concomitant]
     Active Substance: QUERCETIN
  13. ARMOUR THYROID [Concomitant]
     Active Substance: THYROID, PORCINE
  14. VITAMIN D [Concomitant]
     Active Substance: CHOLECALCIFEROL
  15. BACLOFEN. [Suspect]
     Active Substance: BACLOFEN
     Indication: TRIGEMINAL NEURALGIA
     Dosage: ?          QUANTITY:90 TABLET(S);?
     Route: 048
     Dates: start: 20170628, end: 20170706
  16. TYROSINE [Concomitant]
     Active Substance: TYROSINE

REACTIONS (32)
  - Sedation complication [None]
  - Paraesthesia [None]
  - Dyspnoea [None]
  - Ill-defined disorder [None]
  - Cardiac disorder [None]
  - Feeling hot [None]
  - Feeling abnormal [None]
  - Musculoskeletal disorder [None]
  - Speech disorder [None]
  - Headache [None]
  - Overdose [None]
  - Fatigue [None]
  - Haematoma [None]
  - Flushing [None]
  - Increased tendency to bruise [None]
  - Oedema [None]
  - Hyperhidrosis [None]
  - Somatic symptom disorder [None]
  - Depressed level of consciousness [None]
  - Asthma [None]
  - Drug effect increased [None]
  - Sudden onset of sleep [None]
  - Muscle strain [None]
  - Photopsia [None]
  - Mania [None]
  - Blood pressure increased [None]
  - Somnolence [None]
  - Drug level decreased [None]
  - Hypotonia [None]
  - Fall [None]
  - Drug interaction [None]
  - Coma [None]

NARRATIVE: CASE EVENT DATE: 20170630
